FAERS Safety Report 8059225-9 (Version None)
Quarter: 2012Q1

REPORT INFORMATION
  Report Type: 
  Country: None (occurrence: None)
  Receive Date: 20120120
  Receipt Date: 20120117
  Transmission Date: 20120608
  Serious: Yes (Hospitalization)
  Sender: FDA-Public Use
  Company Number: GB-PFIZER INC-K201101036

PATIENT
  Age: 76 Year
  Sex: Male

DRUGS (9)
  1. ALTACE [Suspect]
     Indication: HYPERTENSION
     Dosage: 2.5 MG, 1X/DAY
     Route: 048
     Dates: start: 20110803
  2. CLOPIDOGREL [Concomitant]
     Dosage: UNK
  3. FELODIPINE [Concomitant]
     Dosage: UNK
     Dates: end: 20110801
  4. FUROSEMIDE [Concomitant]
     Dosage: UNK
  5. EZETIMIBE [Concomitant]
     Dosage: UNK
  6. LANSOPRAZOLE [Concomitant]
     Dosage: UNK
  7. IVABRADINE [Suspect]
     Indication: ANGINA PECTORIS
     Dosage: 5 MG, 2X/DAY
     Route: 048
     Dates: start: 20110301, end: 20110817
  8. ATORVASTATIN [Concomitant]
     Dosage: UNK
  9. ISOSORBIDE MONONITRATE [Concomitant]
     Dosage: UNK

REACTIONS (3)
  - DYSPNOEA [None]
  - LUNG DISORDER [None]
  - WEIGHT DECREASED [None]
